FAERS Safety Report 4949929-6 (Version None)
Quarter: 2006Q1

REPORT INFORMATION
  Report Type: 
  Country: None (occurrence: None)
  Receive Date: 20060127
  Receipt Date: 20050330
  Transmission Date: 20060701
  Serious: Yes (Hospitalization, Other)
  Sender: FDA-Public Use
  Company Number: 05-03-0532

PATIENT
  Age: 14 Year
  Sex: Male

DRUGS (3)
  1. CLOZAPINE [Suspect]
     Indication: SCHIZOAFFECTIVE DISORDER
     Dosage: 150-300 MG QD, ORAL
     Route: 048
     Dates: start: 20050301, end: 20050301
  2. HALDOL [Suspect]
  3. LITHIUM CARBONATE [Suspect]

REACTIONS (2)
  - DROOLING [None]
  - NEUROLEPTIC MALIGNANT SYNDROME [None]
